FAERS Safety Report 13043427 (Version 1)
Quarter: 2016Q4

REPORT INFORMATION
  Report Type: Report from Study
  Country: CA (occurrence: CA)
  Receive Date: 20161220
  Receipt Date: 20161220
  Transmission Date: 20170207
  Serious: Yes (Other)
  Sender: FDA-Public Use
  Company Number: CA-AMGEN-CANSL2016176192

PATIENT
  Age: 48 Year
  Sex: Male

DRUGS (2)
  1. ENBREL [Suspect]
     Active Substance: ETANERCEPT
     Indication: ANKYLOSING SPONDYLITIS
     Dosage: 50 MG, UNK
     Route: 065
     Dates: start: 201611
  2. ASA [Concomitant]
     Active Substance: ASPIRIN
     Dosage: 81 MG, UNK

REACTIONS (6)
  - Osteitis [Not Recovered/Not Resolved]
  - Bone pain [Not Recovered/Not Resolved]
  - Pulmonary oedema [Unknown]
  - Oropharyngeal discomfort [Not Recovered/Not Resolved]
  - Bronchitis [Unknown]
  - Condition aggravated [Not Recovered/Not Resolved]
